FAERS Safety Report 6608334-7 (Version None)
Quarter: 2010Q1

REPORT INFORMATION
  Report Type: 
  Country: None (occurrence: None)
  Receive Date: 20100225
  Receipt Date: 20100225
  Transmission Date: 20100710
  Serious: Yes (Other)
  Sender: FDA-Public Use
  Company Number: None

PATIENT
  Age: 88 Year
  Sex: Male
  Weight: 87.5 kg

DRUGS (1)
  1. DICLOFENAC SODIUM [Suspect]
     Dosage: A SMALL AMOUNT BID TOP
     Route: 061
     Dates: start: 20091007, end: 20091029

REACTIONS (1)
  - DERMATITIS CONTACT [None]
